FAERS Safety Report 16478698 (Version 4)
Quarter: 2022Q4

REPORT INFORMATION
  Report Type: Report from Study
  Country: AU (occurrence: AU)
  Receive Date: 20190626
  Receipt Date: 20221003
  Transmission Date: 20230113
  Serious: Yes (Other)
  Sender: FDA-Public Use
  Company Number: PHHY2019AU143332

PATIENT
  Age: 49 Year
  Sex: Female

DRUGS (3)
  1. NILOTINIB [Suspect]
     Active Substance: NILOTINIB
     Indication: Chronic myeloid leukaemia
     Dosage: 400 MG
     Route: 065
     Dates: start: 200909
  2. DASATINIB [Suspect]
     Active Substance: DASATINIB
     Indication: Chronic myeloid leukaemia
     Dosage: 100 MG, QD
     Route: 065
     Dates: start: 20171016, end: 201812
  3. PONATINIB [Suspect]
     Active Substance: PONATINIB
     Indication: Chronic myeloid leukaemia
     Dosage: UNK
     Route: 065
     Dates: start: 20190208

REACTIONS (4)
  - Pulmonary hypertension [Recovered/Resolved]
  - Dyspnoea [Unknown]
  - Pulmonary hypertension [Unknown]
  - Drug resistance [Unknown]

NARRATIVE: CASE EVENT DATE: 20170401
